FAERS Safety Report 5130444-4 (Version None)
Quarter: 2006Q4

REPORT INFORMATION
  Report Type: 
  Country: None (occurrence: None)
  Receive Date: 20061018
  Receipt Date: 20061018
  Transmission Date: 20070319
  Serious: Yes (Hospitalization)
  Sender: FDA-Public Use
  Company Number: None

PATIENT
  Sex: Female
  Weight: 107.14 kg

DRUGS (8)
  1. CARBOPLATIN [Suspect]
     Dosage: 460 MG
  2. TAXOL [Suspect]
     Dosage: 348 MG
  3. ATENOLOL [Concomitant]
  4. COUMADIN [Concomitant]
  5. LISINOPRIL [Concomitant]
  6. NPH INSULIN [Concomitant]
  7. NORVACE [Concomitant]
  8. REGULAR INSULIN [Concomitant]

REACTIONS (10)
  - BLOOD URINE PRESENT [None]
  - CYSTITIS HAEMORRHAGIC [None]
  - ENDOSCOPY ABNORMAL [None]
  - ENTEROCOCCAL INFECTION [None]
  - HYDRONEPHROSIS [None]
  - INFLAMMATION [None]
  - NODULE [None]
  - PELVIC DISCOMFORT [None]
  - POOR PERIPHERAL CIRCULATION [None]
  - RENAL FAILURE ACUTE [None]
